FAERS Safety Report 4696135-9 (Version None)
Quarter: 2005Q2

REPORT INFORMATION
  Report Type: 
  Country: None (occurrence: None)
  Receive Date: 20050620
  Receipt Date: 20050608
  Transmission Date: 20051028
  Serious: Yes (Other)
  Sender: FDA-Public Use
  Company Number: 2005086104

PATIENT
  Age: 22 Year
  Sex: Female
  Weight: 48 kg

DRUGS (1)
  1. CLINDAMYCIN HYDROCHLORIDE [Suspect]
     Indication: ILL-DEFINED DISORDER
     Dosage: 150 MG (150 MG, DAILY), ORAL
     Route: 048
     Dates: start: 20040101, end: 20040101

REACTIONS (3)
  - DYSPNOEA [None]
  - FEELING ABNORMAL [None]
  - MUSCULAR WEAKNESS [None]
